FAERS Safety Report 6388510-1 (Version None)
Quarter: 2009Q4

REPORT INFORMATION
  Report Type: 
  Country: None (occurrence: None)
  Receive Date: 20091005
  Receipt Date: 20090929
  Transmission Date: 20100525
  Serious: Yes (Hospitalization)
  Sender: FDA-Public Use
  Company Number: B0595126A

PATIENT
  Sex: Female

DRUGS (4)
  1. VALTREX [Suspect]
     Indication: FACIAL PALSY
     Dosage: 1000MG THREE TIMES PER DAY
     Route: 048
     Dates: start: 20090918, end: 20090919
  2. PREDONINE [Concomitant]
     Indication: FACIAL PALSY
     Route: 065
     Dates: start: 20090918
  3. METHYCOBAL [Concomitant]
     Indication: FACIAL PALSY
     Dosage: 1500MCG PER DAY
     Route: 065
     Dates: start: 20090918
  4. HALCION [Concomitant]
     Indication: INSOMNIA
     Dosage: .25MG PER DAY
     Route: 048
     Dates: start: 20080101

REACTIONS (7)
  - ALTERED STATE OF CONSCIOUSNESS [None]
  - ASTHENIA [None]
  - DELIRIUM [None]
  - DELUSION [None]
  - DISORIENTATION [None]
  - FEELING ABNORMAL [None]
  - HALLUCINATION [None]
